FAERS Safety Report 9351507 (Version 4)
Quarter: 2014Q1

REPORT INFORMATION
  Report Type: Report from Study
  Country: ES (occurrence: ES)
  Receive Date: 20130617
  Receipt Date: 20140303
  Transmission Date: 20141002
  Serious: Yes (Disabling, Other)
  Sender: FDA-Public Use
  Company Number: ES-ACTELION-A-CH2013-84399

PATIENT
  Age: 8 Year
  Sex: Female
  Weight: 8.2 kg

DRUGS (2)
  1. ZAVESCA [Suspect]
     Indication: NIEMANN-PICK DISEASE
     Dosage: 100 MG, BID
     Route: 048
     Dates: start: 20090902
  2. CLOMETHIAZOLE [Concomitant]
     Dosage: UNK
     Dates: start: 20101202

REACTIONS (10)
  - Convulsion [Not Recovered/Not Resolved]
  - Growth retardation [Not Recovered/Not Resolved]
  - Tremor [Not Recovered/Not Resolved]
  - Diarrhoea [Not Recovered/Not Resolved]
  - Gaze palsy [Not Recovered/Not Resolved]
  - Ataxia [Not Recovered/Not Resolved]
  - Dysphagia [Not Recovered/Not Resolved]
  - Condition aggravated [Not Recovered/Not Resolved]
  - Niemann-Pick disease [Not Recovered/Not Resolved]
  - Weight decreased [Not Recovered/Not Resolved]
